FAERS Safety Report 23883518 (Version 3)
Quarter: 2024Q3

REPORT INFORMATION
  Report Type: Spontaneous
  Country: US (occurrence: US)
  Receive Date: 20240522
  Receipt Date: 20240723
  Transmission Date: 20241016
  Serious: Yes (Other)
  Sender: AUROBINDO
  Company Number: US-AUROBINDO-AUR-APL-2024-023903

PATIENT
  Age: 74 Year
  Sex: Female

DRUGS (1)
  1. GABAPENTIN [Suspect]
     Active Substance: GABAPENTIN
     Indication: Back pain
     Dosage: 100 MILLIGRAM, ONCE A DAY
     Route: 048
     Dates: start: 202403

REACTIONS (4)
  - Mental impairment [Recovered/Resolved]
  - Cerebral disorder [Recovered/Resolved]
  - Drug ineffective for unapproved indication [Unknown]
  - Unevaluable event [Unknown]
